FAERS Safety Report 5188261-5 (Version None)
Quarter: 2006Q4

REPORT INFORMATION
  Report Type: 
  Country: None (occurrence: None)
  Receive Date: 20061221
  Receipt Date: 20061017
  Transmission Date: 20070319
  Serious: Yes (Hospitalization)
  Sender: FDA-Public Use
  Company Number: FR-GLAXOSMITHKLINE-B0442619A

PATIENT
  Age: 90 Year
  Sex: Female

DRUGS (13)
  1. DEROXAT [Suspect]
     Dosage: 10MG PER DAY
     Route: 048
     Dates: start: 20060524, end: 20060614
  2. MODURETIC 5-50 [Suspect]
     Dosage: .5UNIT PER DAY
     Route: 048
     Dates: end: 20060615
  3. CLAMOXYL [Concomitant]
     Dosage: 1G TWICE PER DAY
     Route: 048
     Dates: start: 20060614
  4. FORLAX [Concomitant]
     Dosage: 1SAC IN THE MORNING
     Route: 048
     Dates: end: 20060615
  5. INIPOMP [Concomitant]
     Dosage: 40MG PER DAY
     Route: 048
     Dates: end: 20060615
  6. BUFLOMEDIL [Concomitant]
     Dosage: 300MG TWICE PER DAY
     Route: 048
     Dates: end: 20060615
  7. AMLOR [Concomitant]
     Dosage: 5MG PER DAY
     Route: 048
  8. FLAGYL [Concomitant]
     Dosage: 500MG TWICE PER DAY
     Route: 048
     Dates: start: 20060614
  9. XALATAN [Concomitant]
     Dosage: 2DROP PER DAY
     Route: 047
  10. LEXOMIL [Concomitant]
     Dosage: .25MG TWICE PER DAY
     Route: 048
  11. VASTAREL [Concomitant]
     Dosage: 20MG THREE TIMES PER DAY
     Route: 048
  12. FORTIMEL [Concomitant]
     Dosage: 1SAC PER DAY
     Route: 048
  13. PLAVIX [Concomitant]
     Dosage: 1UNIT PER DAY
     Route: 048

REACTIONS (4)
  - DISORIENTATION [None]
  - HYPONATRAEMIA [None]
  - NAUSEA [None]
  - VOMITING [None]
